FAERS Safety Report 23425200 (Version 1)
Quarter: 2024Q1

REPORT INFORMATION
  Report Type: Spontaneous
  Country: US (occurrence: US)
  Receive Date: 20240121
  Receipt Date: 20240121
  Transmission Date: 20240410
  Serious: Yes (Other)
  Sender: FDA-Public Use
  Company Number: US-NOVOPROD-1164371

PATIENT
  Age: 67 Year
  Sex: Male

DRUGS (1)
  1. LEVEMIR [Suspect]
     Active Substance: INSULIN DETEMIR
     Indication: Type 2 diabetes mellitus
     Dosage: 74 IU, QD
     Route: 058
     Dates: start: 2014

REACTIONS (3)
  - Coronary arterial stent insertion [Unknown]
  - Lipids increased [Unknown]
  - Arthritis [Unknown]

NARRATIVE: CASE EVENT DATE: 20231101
